APPROVED DRUG PRODUCT: ALPRAZOLAM
Active Ingredient: ALPRAZOLAM
Strength: 2MG
Dosage Form/Route: TABLET, EXTENDED RELEASE;ORAL
Application: A077391 | Product #004
Applicant: PHARMOBEDIENT CONSULTING LLC
Approved: Jan 26, 2006 | RLD: No | RS: No | Type: DISCN